FAERS Safety Report 8376710-0 (Version None)
Quarter: 2012Q1

REPORT INFORMATION
  Report Type: 
  Country: None (occurrence: None)
  Receive Date: 20120323
  Receipt Date: 20110804
  Transmission Date: 20120608
  Serious: Yes (Hospitalization, Other)
  Sender: FDA-Public Use
  Company Number: 163-21880-10112294

PATIENT
  Age: 56 Year
  Sex: Male

DRUGS (13)
  1. B COMPLEX ELX [Concomitant]
  2. THYROID TAB [Concomitant]
  3. BETA CAROTENE (BETACAROTENE) [Concomitant]
  4. DEXAMETHASONE [Concomitant]
  5. FISH OIL (FISH OIL) [Concomitant]
  6. MULTIVITAMIN [Concomitant]
  7. SAW PALMETTO (SERENOA REPENS) [Concomitant]
  8. CALCIUM CITRATE + D WITH MAGNESIUM (CALCIUM CITRATE W/VITAMIN D NOS) [Concomitant]
  9. L-LYSINE (LYSINE) [Concomitant]
  10. STAMINOL (ALL OTHER THERAPEUTIC PRODUCTS) [Concomitant]
  11. REVLIMID [Suspect]
     Indication: PLASMACYTOSIS
     Dosage: 25 MG, 1 IN 1 D, PO 25 MG, 1 IN 2 D, PO
     Route: 048
     Dates: start: 20101008, end: 20101015
  12. REVLIMID [Suspect]
     Indication: PLASMACYTOSIS
     Dosage: 25 MG, 1 IN 1 D, PO 25 MG, 1 IN 2 D, PO
     Route: 048
     Dates: end: 20101115
  13. AREDIA [Concomitant]

REACTIONS (2)
  - RASH [None]
  - PULMONARY EMBOLISM [None]
